FAERS Safety Report 23162566 (Version 1)
Quarter: 2023Q4

REPORT INFORMATION
  Report Type: Spontaneous
  Country: US (occurrence: US)
  Receive Date: 20231109
  Receipt Date: 20231109
  Transmission Date: 20240110
  Serious: No
  Sender: FDA-Public Use
  Company Number: US-JNJFOC-20231076498

PATIENT
  Age: 3 Year
  Sex: Male

DRUGS (2)
  1. CHILDRENS MOTRIN [Suspect]
     Active Substance: IBUPROFEN
     Indication: Pyrexia
     Dosage: CONSUMER GAVE HIM TYLENOL ON 26-OCT-2023 THEN 3 PM MOTRIN, AND THEN 6 PM AGAIN. ON 27-OCT-2023, CONS
     Route: 065
     Dates: start: 20231026
  2. TYLENOL [Concomitant]
     Active Substance: ACETAMINOPHEN
     Indication: Pyrexia
     Dosage: CONSUMER GAVE HIM TYLENOL ON 26-OCT-2023 THEN 3 PM MOTRIN, AND THEN 6 PM AGAIN. ON 27-OCT-2023, CONS
     Route: 065
     Dates: start: 20231026

REACTIONS (2)
  - Pyrexia [Unknown]
  - Inappropriate schedule of product administration [Unknown]

NARRATIVE: CASE EVENT DATE: 20231026
